FAERS Safety Report 8889006 (Version 1)
Quarter: 2012Q4

REPORT INFORMATION
  Report Type: 
  Country: US (occurrence: US)
  Receive Date: 20121106
  Receipt Date: 20121106
  Transmission Date: 20130627
  Serious: No
  Sender: FDA-Public Use
  Company Number: US-TEVA-358681USA

PATIENT
  Age: 78 Year
  Sex: Male
  Weight: 86.26 kg

DRUGS (5)
  1. QNASL [Suspect]
     Indication: HYPERSENSITIVITY
     Dosage: 80 Microgram Daily; 320 mcg
     Dates: start: 20120904, end: 20120910
  2. LISINOPRIL [Concomitant]
     Route: 048
  3. SOTALOL [Concomitant]
     Route: 048
  4. LIPITOR [Concomitant]
     Indication: HYPERCHOLESTEROLAEMIA
     Route: 048
  5. NEXIUM [Concomitant]
     Indication: DYSPEPSIA
     Route: 048

REACTIONS (2)
  - Oculogyric crisis [Recovered/Resolved]
  - Visual acuity reduced [Recovered/Resolved]
